FAERS Safety Report 12125999 (Version 2)
Quarter: 2016Q1

REPORT INFORMATION
  Report Type: Report from Study
  Country: BR (occurrence: BR)
  Receive Date: 20160229
  Receipt Date: 20160329
  Transmission Date: 20160526
  Serious: Yes (Hospitalization)
  Sender: FDA-Public Use
  Company Number: PHHY2016BR025781

PATIENT
  Sex: Female
  Weight: 30 kg

DRUGS (4)
  1. EXJADE [Suspect]
     Active Substance: DEFERASIROX
     Indication: SICKLE CELL ANAEMIA
     Dosage: 15 MG/KG, (1 DF OF 500 MG) QD
     Route: 048
     Dates: start: 2008
  2. CARBAMAZEPINE. [Concomitant]
     Active Substance: CARBAMAZEPINE
     Indication: CONVULSION PROPHYLAXIS
     Dosage: 1 DF, QD
     Route: 048
     Dates: start: 2008
  3. FOLIC ACID. [Concomitant]
     Active Substance: FOLIC ACID
     Indication: SICKLE CELL ANAEMIA
     Dosage: 1 DF, QD
     Route: 048
     Dates: start: 2008
  4. HYDREA [Concomitant]
     Active Substance: HYDROXYUREA
     Indication: SICKLE CELL ANAEMIA
     Dosage: 02 TABLETS (EVEN DAY) 01 TABLET (ODD DAY), UNK
     Route: 048
     Dates: start: 2008

REACTIONS (3)
  - Malaise [Unknown]
  - Seizure [Recovering/Resolving]
  - Vomiting [Recovered/Resolved]
